FAERS Safety Report 6644740-2 (Version None)
Quarter: 2010Q1

REPORT INFORMATION
  Report Type: 
  Country: None (occurrence: None)
  Receive Date: 20100322
  Receipt Date: 20100308
  Transmission Date: 20100710
  Serious: Yes (Other)
  Sender: FDA-Public Use
  Company Number: US-ELI_LILLY_AND_COMPANY-US201003002691

PATIENT
  Sex: Male

DRUGS (4)
  1. GEMZAR [Suspect]
     Indication: LUNG ADENOCARCINOMA
  2. CRESTOR [Concomitant]
     Dosage: UNK, EACH MORNING
  3. PLAVIX [Concomitant]
     Dosage: UNK, EACH MORNING
  4. ZETIA [Concomitant]
     Dosage: UNK, EACH MORNING

REACTIONS (9)
  - BODY TEMPERATURE DECREASED [None]
  - BODY TEMPERATURE FLUCTUATION [None]
  - BODY TEMPERATURE INCREASED [None]
  - CHILLS [None]
  - FATIGUE [None]
  - FEELING COLD [None]
  - FLUSHING [None]
  - NIGHT SWEATS [None]
  - PERIPHERAL COLDNESS [None]
